FAERS Safety Report 4332406-3 (Version None)
Quarter: 2004Q2

REPORT INFORMATION
  Report Type: 
  Country: None (occurrence: None)
  Receive Date: 20040401
  Receipt Date: 20040322
  Transmission Date: 20050107
  Serious: Yes (Death, Other)
  Sender: FDA-Public Use
  Company Number: 2004-03-1571

PATIENT
  Age: 45 Year
  Sex: Male

DRUGS (9)
  1. TEMODAL [Suspect]
     Indication: BRAIN NEOPLASM MALIGNANT
     Dosage: 350 MG X5D/MO ORAL
     Route: 048
  2. ATIVAN [Concomitant]
  3. DEXAMETHASONE [Concomitant]
  4. POTASSIUM SUPPLEMENT (NOS) [Concomitant]
  5. DILANTIN [Concomitant]
  6. DOCUSATE SODIUM CAPSULES [Concomitant]
  7. NORVASC [Concomitant]
  8. MORPHINE [Concomitant]
  9. LOSEC [Concomitant]

REACTIONS (2)
  - PROCEDURAL COMPLICATION [None]
  - SURGERY [None]
